FAERS Safety Report 5366695-3 (Version None)
Quarter: 2007Q2

REPORT INFORMATION
  Report Type: 
  Country: None (occurrence: None)
  Receive Date: 20070622
  Receipt Date: 20060227
  Transmission Date: 20071010
  Serious: No
  Sender: FDA-Public Use
  Company Number: US-ASTRAZENECA-2006UW03380

PATIENT
  Age: 81 Year
  Sex: Female
  Weight: 77.1 kg

DRUGS (9)
  1. RHINOCORT [Suspect]
     Indication: RHINORRHOEA
     Route: 045
  2. LASIX [Concomitant]
  3. COUMADIN [Concomitant]
  4. GLIPIZIDE [Concomitant]
  5. KEPPRA [Concomitant]
  6. METFORMIN HCL [Concomitant]
  7. ACTOS [Concomitant]
  8. VIATIM [Concomitant]
  9. DIGITOXIN TAB [Concomitant]

REACTIONS (2)
  - OCULAR HYPERAEMIA [None]
  - RASH [None]
